FAERS Safety Report 10745787 (Version 3)
Quarter: 2015Q1

REPORT INFORMATION
  Report Type: Spontaneous
  Country: BR (occurrence: BR)
  Receive Date: 20150128
  Receipt Date: 20150216
  Transmission Date: 20150721
  Serious: Yes (Other)
  Sender: FDA-Public Use
  Company Number: PHHY2015BR007421

PATIENT
  Age: 53 Year
  Sex: Male

DRUGS (2)
  1. GILENYA [Suspect]
     Active Substance: FINGOLIMOD HYDROCHLORIDE
     Indication: MULTIPLE SCLEROSIS
     Dosage: 0.5 MG, QD
     Route: 048
     Dates: start: 20150109
  2. MOTILIUM [Concomitant]
     Active Substance: DOMPERIDONE
     Indication: GASTROOESOPHAGEAL REFLUX DISEASE
     Dosage: 2 DF, QD, 10 YEARS AGO
     Route: 048

REACTIONS (17)
  - Hypoaesthesia [Recovering/Resolving]
  - Abdominal pain upper [Recovered/Resolved]
  - Blindness [Unknown]
  - Dysstasia [Not Recovered/Not Resolved]
  - Dizziness [Unknown]
  - Abasia [Recovering/Resolving]
  - Fall [Recovered/Resolved]
  - Bone pain [Recovering/Resolving]
  - Chromaturia [Recovered/Resolved]
  - Drug monitoring procedure not performed [Unknown]
  - Muscle atrophy [Not Recovered/Not Resolved]
  - Discomfort [Recovering/Resolving]
  - Vision blurred [Recovering/Resolving]
  - Movement disorder [Recovering/Resolving]
  - Spinal pain [Not Recovered/Not Resolved]
  - Pain in extremity [Not Recovered/Not Resolved]
  - Malaise [Unknown]

NARRATIVE: CASE EVENT DATE: 20150116
